FAERS Safety Report 15798038 (Version 2)
Quarter: 2019Q1

REPORT INFORMATION
  Report Type: Report from Study
  Country: JP (occurrence: JP)
  Receive Date: 20190108
  Receipt Date: 20190225
  Transmission Date: 20190417
  Serious: Yes (Death, Hospitalization)
  Sender: FDA-Public Use
  Company Number: JP-PFIZER INC-2018535058

PATIENT
  Age: 57 Year
  Sex: Male

DRUGS (6)
  1. IMIPENEM AND CILASTATIN [Suspect]
     Active Substance: CILASTATIN SODIUM\IMIPENEM
     Indication: STAPHYLOCOCCAL INFECTION
  2. IMIPENEM AND CILASTATIN [Suspect]
     Active Substance: CILASTATIN SODIUM\IMIPENEM
     Indication: DEVICE RELATED INFECTION
     Dosage: UNK
     Route: 042
     Dates: start: 200505, end: 200505
  3. CLINDAMYCIN PHOSPHATE. [Suspect]
     Active Substance: CLINDAMYCIN PHOSPHATE
     Indication: STAPHYLOCOCCAL INFECTION
  4. PIPERACILLIN. [Suspect]
     Active Substance: PIPERACILLIN SODIUM
     Indication: DEVICE RELATED INFECTION
     Dosage: UNK
     Route: 042
     Dates: start: 200505, end: 200505
  5. CLINDAMYCIN PHOSPHATE. [Suspect]
     Active Substance: CLINDAMYCIN PHOSPHATE
     Indication: DEVICE RELATED INFECTION
     Dosage: UNK
     Route: 042
     Dates: start: 200505, end: 200505
  6. PIPERACILLIN. [Suspect]
     Active Substance: PIPERACILLIN SODIUM
     Indication: STAPHYLOCOCCAL INFECTION

REACTIONS (1)
  - Drug ineffective [Fatal]

NARRATIVE: CASE EVENT DATE: 200505
